FAERS Safety Report 25020844 (Version 1)
Quarter: 2025Q1

REPORT INFORMATION
  Report Type: Spontaneous
  Country: PL (occurrence: PL)
  Receive Date: 20250227
  Receipt Date: 20250227
  Transmission Date: 20250409
  Serious: Yes (Other)
  Sender: JOHNSON AND JOHNSON
  Company Number: None

PATIENT
  Age: 64 Year
  Sex: Female

DRUGS (4)
  1. XARELTO [Suspect]
     Active Substance: RIVAROXABAN
     Indication: Product used for unknown indication
     Dosage: 20 MG, QD
     Route: 048
     Dates: start: 20210605
  2. Trifas cor [Concomitant]
     Indication: Product used for unknown indication
     Dosage: 2.5 MG, QD
     Route: 048
     Dates: start: 20210605
  3. ENOXAPARIN SODIUM [Concomitant]
     Active Substance: ENOXAPARIN SODIUM
     Indication: Product used for unknown indication
     Route: 058
     Dates: start: 20210605
  4. Tulip [Concomitant]
     Indication: Product used for unknown indication
     Dosage: 20 MG, QD
     Route: 048
     Dates: start: 20210605

REACTIONS (3)
  - International normalised ratio increased [Unknown]
  - Prothrombin time prolonged [Unknown]
  - Prothrombin time ratio decreased [Unknown]

NARRATIVE: CASE EVENT DATE: 20210607
